FAERS Safety Report 14889481 (Version 1)
Quarter: 2018Q2

REPORT INFORMATION
  Report Type: Report from Study
  Country: None (occurrence: SE)
  Receive Date: 20180514
  Receipt Date: 20180514
  Transmission Date: 20180711
  Serious: Yes (Hospitalization)
  Sender: FDA-Public Use
  Company Number: SE-ABBVIE-18K-150-2348561-00

PATIENT
  Age: 66 Year
  Sex: Male

DRUGS (3)
  1. DUODOPA [Suspect]
     Active Substance: CARBIDOPA\LEVODOPA
     Route: 050
     Dates: start: 20070228
  2. DUODOPA [Suspect]
     Active Substance: CARBIDOPA\LEVODOPA
     Indication: PARKINSON^S DISEASE
     Route: 050
     Dates: start: 20070219, end: 2007
  3. DUODOPA [Suspect]
     Active Substance: CARBIDOPA\LEVODOPA
     Dosage: CHANGED THE CONTINUOUS DOSE FROM 3.8 TO 3.0 AND THE MORNING DOSE WAS REMOVED.
     Route: 050
     Dates: start: 201805

REACTIONS (2)
  - Hyporeflexia [Not Recovered/Not Resolved]
  - Terminal state [Unknown]

NARRATIVE: CASE EVENT DATE: 201804
